FAERS Safety Report 9336782 (Version 1)
Quarter: 2013Q2

REPORT INFORMATION
  Report Type: Spontaneous
  Country: DE (occurrence: DE)
  Receive Date: 20130607
  Receipt Date: 20130607
  Transmission Date: 20140414
  Serious: Yes (Congenital Anomaly)
  Sender: FDA-Public Use
  Company Number: GXKR2013DE002029

PATIENT
  Sex: 0

DRUGS (3)
  1. LAMOTRIGINE [Suspect]
     Dosage: MATERNAL DOSE: 1200 [MG/D ]/ INCREASING DOSE SINCE WK 6.0 FROM 300 MG/D TO 1200 MG/D MAX
     Route: 064
     Dates: start: 20070403, end: 20080102
  2. FRISIUM [Suspect]
     Dosage: MATERNAL DOSE: 10 [MG/D ]/ 10 MG TILL WK 23, THEN DECREASING DOSE. BEGIN IN WEEK 5 OR 6.
     Route: 064
  3. FOLIC ACID [Concomitant]
     Dosage: MATERNAL DOSE: 5 [MG/D ]
     Route: 064
     Dates: start: 20070403, end: 20080102

REACTIONS (2)
  - Ventricular septal defect [Unknown]
  - Haemangioma congenital [Unknown]
